FAERS Safety Report 8828069 (Version 2)
Quarter: 2012Q4

REPORT INFORMATION
  Report Type: 
  Country: DE (occurrence: DE)
  Receive Date: 20121008
  Receipt Date: 20121101
  Transmission Date: 20130627
  Serious: Yes (Death, Hospitalization)
  Sender: FDA-Public Use
  Company Number: PHHY2012DE085494

PATIENT
  Age: 63 None
  Sex: Female
  Weight: 78 kg

DRUGS (1)
  1. SANDOSTATIN LAR [Suspect]
     Indication: PANCREATIC NEUROENDOCRINE TUMOUR
     Dosage: 20mg every 28 days
     Route: 030
     Dates: start: 20110301, end: 20120831

REACTIONS (4)
  - Astrocytoma [Fatal]
  - Hemiparesis [Fatal]
  - General physical health deterioration [Fatal]
  - Condition aggravated [Fatal]
